FAERS Safety Report 4837673-5 (Version None)
Quarter: 2005Q4

REPORT INFORMATION
  Report Type: 
  Country: None (occurrence: None)
  Receive Date: 20051128
  Receipt Date: 20050929
  Transmission Date: 20060501
  Serious: Yes (Hospitalization)
  Sender: FDA-Public Use
  Company Number: US-MERCK-0510USA00360

PATIENT
  Age: 72 Year
  Sex: Female
  Weight: 77 kg

DRUGS (33)
  1. VIOXX [Suspect]
     Indication: BACK PAIN
     Route: 048
     Dates: start: 20030101, end: 20040801
  2. VIOXX [Suspect]
     Indication: PAIN IN EXTREMITY
     Route: 048
     Dates: start: 20030101, end: 20040801
  3. ACCUPRIL [Concomitant]
     Route: 065
  4. ACTOS [Concomitant]
     Route: 065
  5. ACIPHEX [Concomitant]
     Route: 065
  6. ASPIRIN [Concomitant]
     Route: 065
  7. ASPIRIN [Concomitant]
     Route: 065
  8. ATACAND [Concomitant]
     Route: 065
  9. ATENOLOL [Concomitant]
     Route: 065
  10. BENADRYL [Concomitant]
     Route: 065
  11. CLORAZEPATE DIPOTASSIUM [Concomitant]
     Route: 065
  12. DEMEROL [Concomitant]
     Route: 065
  13. DEPAKOTE [Concomitant]
     Route: 065
  14. DETROL [Concomitant]
     Route: 065
  15. FERROUS SULFATE [Concomitant]
     Route: 065
  16. GLUCOPHAGE [Concomitant]
     Route: 065
  17. HEPARIN [Concomitant]
     Route: 065
  18. HUMULIN [Concomitant]
     Route: 065
  19. HYDROCHLOROTHIAZIDE [Concomitant]
     Route: 065
  20. ACETAMINOPHEN AND HYDROCODONE BITARTRATE [Concomitant]
     Route: 065
  21. INSULIN [Concomitant]
     Route: 065
  22. LASIX [Concomitant]
     Route: 065
  23. LIPITOR [Concomitant]
     Route: 065
  24. LOVENOX [Concomitant]
     Route: 065
  25. MUCOMYST [Concomitant]
     Route: 065
  26. NITROQUICK [Concomitant]
     Route: 065
  27. PLAVIX [Concomitant]
     Route: 065
  28. PROTONIX [Concomitant]
     Route: 065
  29. VALIUM [Concomitant]
     Route: 065
  30. VERSED [Concomitant]
     Route: 065
  31. ZITHROMAX [Concomitant]
     Route: 065
  32. ZOFRAN [Concomitant]
     Route: 065
  33. ZOLOFT [Concomitant]
     Route: 065

REACTIONS (16)
  - ANGINA UNSTABLE [None]
  - AORTIC DILATATION [None]
  - AORTIC VALVE INCOMPETENCE [None]
  - AORTIC VALVE SCLEROSIS [None]
  - ATRIAL FIBRILLATION [None]
  - CHEST DISCOMFORT [None]
  - GASTROOESOPHAGEAL REFLUX DISEASE [None]
  - HEADACHE [None]
  - HYPERTENSION [None]
  - ISCHAEMIA [None]
  - MITRAL VALVE INCOMPETENCE [None]
  - MYOCARDIAL INFARCTION [None]
  - MYOCARDIAL ISCHAEMIA [None]
  - RENAL FAILURE [None]
  - TRICUSPID VALVE INCOMPETENCE [None]
  - VENTRICULAR HYPERTROPHY [None]
